FAERS Safety Report 17121404 (Version 1)
Quarter: 2019Q4

REPORT INFORMATION
  Report Type: Spontaneous
  Country: US (occurrence: US)
  Receive Date: 20191205
  Receipt Date: 20191205
  Transmission Date: 20200122
  Serious: Yes (Disabling, Other)
  Sender: FDA-Public Use
  Company Number: None

PATIENT
  Age: 24 Year
  Sex: Female
  Weight: 74.25 kg

DRUGS (6)
  1. MULTI VITAMIN [Concomitant]
     Active Substance: VITAMINS
  2. FISH OIL [Concomitant]
     Active Substance: FISH OIL
  3. ADDERALL [Concomitant]
     Active Substance: AMPHETAMINE ASPARTATE\AMPHETAMINE SULFATE\DEXTROAMPHETAMINE SACCHARATE\DEXTROAMPHETAMINE SULFATE
  4. ABSORICA [Suspect]
     Active Substance: ISOTRETINOIN
     Indication: ACNE
     Dates: start: 20140701, end: 20150131
  5. STELARA [Concomitant]
     Active Substance: USTEKINUMAB
  6. BIOTIN [Concomitant]
     Active Substance: BIOTIN

REACTIONS (1)
  - Crohn^s disease [None]

NARRATIVE: CASE EVENT DATE: 20150131
